FAERS Safety Report 19396757 (Version 1)
Quarter: 2021Q2

REPORT INFORMATION
  Report Type: Report from Study
  Country: None (occurrence: US)
  Receive Date: 20210610
  Receipt Date: 20210610
  Transmission Date: 20210717
  Serious: Yes (Hospitalization, Other)
  Sender: FDA-Public Use
  Company Number: US-ABBVIE-21K-163-3941262-00

PATIENT
  Age: 60 Year
  Sex: Male

DRUGS (1)
  1. VENCLEXTA [Suspect]
     Active Substance: VENETOCLAX
     Indication: ACUTE MYELOID LEUKAEMIA RECURRENT
     Route: 048
     Dates: start: 20210202

REACTIONS (3)
  - Transfusion [Unknown]
  - Chemotherapy [Unknown]
  - Platelet transfusion [Unknown]

NARRATIVE: CASE EVENT DATE: 2021
